FAERS Safety Report 7526013-9 (Version None)
Quarter: 2011Q2

REPORT INFORMATION
  Report Type: 
  Country: None (occurrence: None)
  Receive Date: 20110606
  Receipt Date: 20110601
  Transmission Date: 20111010
  Serious: Yes (Hospitalization)
  Sender: FDA-Public Use
  Company Number: DK-ABBOTT-11P-044-0729745-00

PATIENT
  Sex: Male

DRUGS (5)
  1. AZATHIOPRINE SODIUM [Concomitant]
     Indication: CROHN'S DISEASE
  2. AZATHIOPRINE SODIUM [Concomitant]
     Indication: ANKYLOSING SPONDYLITIS
  3. HUMIRA [Suspect]
     Indication: ANKYLOSING SPONDYLITIS
     Dates: start: 20110301
  4. HUMIRA [Suspect]
     Indication: CROHN'S DISEASE
  5. UNSPECIFIED ANTIDEPRESSANT [Concomitant]
     Indication: PRODUCT USED FOR UNKNOWN INDICATION

REACTIONS (8)
  - NASOPHARYNGITIS [None]
  - DYSPNOEA [None]
  - ARTHROPATHY [None]
  - NAUSEA [None]
  - FATIGUE [None]
  - DISCOMFORT [None]
  - ANKYLOSING SPONDYLITIS [None]
  - DYSPEPSIA [None]
